FAERS Safety Report 4780800-9 (Version None)
Quarter: 2005Q3

REPORT INFORMATION
  Report Type: 
  Country: None (occurrence: None)
  Receive Date: 20050927
  Receipt Date: 20050310
  Transmission Date: 20060218
  Serious: Yes (Hospitalization, Other)
  Sender: FDA-Public Use
  Company Number: US-MERCK-0503USA02361

PATIENT
  Age: 62 Year
  Sex: Female
  Weight: 86 kg

DRUGS (10)
  1. VIOXX [Suspect]
     Indication: FIBROMYALGIA
     Route: 048
     Dates: start: 20010501, end: 20040904
  2. VIOXX [Suspect]
     Route: 048
     Dates: start: 20021001, end: 20040904
  3. VIOXX [Suspect]
     Indication: OSTEOARTHRITIS
     Route: 048
     Dates: start: 20010501, end: 20040904
  4. VIOXX [Suspect]
     Route: 048
     Dates: start: 20021001, end: 20040904
  5. METFORMIN [Concomitant]
     Route: 065
  6. GLIPIZIDE [Concomitant]
     Route: 065
  7. LISINOPRIL [Concomitant]
     Route: 065
  8. AMITRIPTYLINE HYDROCHLORIDE [Concomitant]
     Route: 065
  9. PAXIL [Concomitant]
     Route: 065
  10. IPRATROPIUM BROMIDE [Concomitant]
     Route: 065

REACTIONS (19)
  - ACUTE MYOCARDIAL INFARCTION [None]
  - ATRIOVENTRICULAR BLOCK COMPLETE [None]
  - BLOOD CHOLESTEROL INCREASED [None]
  - CARDIAC DISORDER [None]
  - CEREBROVASCULAR ACCIDENT [None]
  - CHEST PAIN [None]
  - CHRONIC FATIGUE SYNDROME [None]
  - CORONARY ARTERY DISEASE [None]
  - CORONARY ARTERY OCCLUSION [None]
  - DIABETES MELLITUS [None]
  - DYSPNOEA [None]
  - HEART RATE DECREASED [None]
  - HYPERHIDROSIS [None]
  - HYPERTENSION [None]
  - INFLUENZA [None]
  - MYOCARDIAL INFARCTION [None]
  - NAUSEA [None]
  - OSTEOARTHRITIS [None]
  - PAIN IN EXTREMITY [None]
